FAERS Safety Report 8480143-6 (Version None)
Quarter: 2012Q2

REPORT INFORMATION
  Report Type: 
  Country: None (occurrence: None)
  Receive Date: 20120629
  Receipt Date: 20120620
  Transmission Date: 20120825
  Serious: Yes (Other)
  Sender: FDA-Public Use
  Company Number: US-ASTRAZENECA-2011SE00156

PATIENT
  Age: 64 Year
  Sex: Female

DRUGS (3)
  1. CHEMOTHERAPY [Suspect]
     Route: 065
  2. NEXIUM [Suspect]
     Route: 048
  3. NEXIUM [Suspect]
     Route: 048

REACTIONS (7)
  - DRUG DOSE OMISSION [None]
  - THROAT IRRITATION [None]
  - NEOPLASM MALIGNANT [None]
  - GASTRIC DISORDER [None]
  - HIATUS HERNIA [None]
  - GASTROOESOPHAGEAL REFLUX DISEASE [None]
  - VISUAL IMPAIRMENT [None]
